FAERS Safety Report 24445963 (Version 2)
Quarter: 2024Q4

REPORT INFORMATION
  Report Type: Spontaneous
  Country: US (occurrence: US)
  Receive Date: 20241016
  Receipt Date: 20241022
  Transmission Date: 20250114
  Serious: Yes (Other)
  Sender: SANOFI AVENTIS
  Company Number: US-MLMSERVICE-20241002-PI215476-00338-1

PATIENT
  Age: 60 Year
  Sex: Female

DRUGS (5)
  1. ZOLPIDEM TARTRATE [Suspect]
     Active Substance: ZOLPIDEM TARTRATE
     Indication: Insomnia
     Dosage: 5 MG
  2. SERTRALINE [Concomitant]
     Active Substance: SERTRALINE HYDROCHLORIDE
     Indication: Major depression
     Dosage: 100 MG, QD
  3. SERTRALINE [Concomitant]
     Active Substance: SERTRALINE HYDROCHLORIDE
     Indication: Psychotic symptom
  4. BUPROPION [Concomitant]
     Active Substance: BUPROPION
     Indication: Major depression
     Dosage: 150 MG, QD
  5. BUPROPION [Concomitant]
     Active Substance: BUPROPION
     Indication: Psychotic symptom

REACTIONS (4)
  - Mental status changes [Recovering/Resolving]
  - Aggression [Recovering/Resolving]
  - Dissociation [Recovering/Resolving]
  - Memory impairment [Recovering/Resolving]
